FAERS Safety Report 7491148-6 (Version None)
Quarter: 2011Q2

REPORT INFORMATION
  Report Type: 
  Country: None (occurrence: None)
  Receive Date: 20110519
  Receipt Date: 20110510
  Transmission Date: 20111010
  Serious: Yes (Other)
  Sender: FDA-Public Use
  Company Number: CN-ASTRAZENECA-2011SE24797

PATIENT
  Age: 65 Year
  Sex: Female

DRUGS (6)
  1. GEMZAR [Suspect]
     Route: 041
  2. GEMZAR [Suspect]
     Indication: LUNG NEOPLASM MALIGNANT
     Dosage: 1500 MG ON DAY 1 FOR 30 MIN TO 1 HOUR
     Route: 041
  3. CISPLATIN [Concomitant]
     Dosage: 60 MG ON DAY 2 FOR 3 HOURS
     Route: 041
  4. CISPLATIN [Concomitant]
     Indication: LUNG NEOPLASM MALIGNANT
     Dosage: 60 MG ON DAY 1 FOR 3 HOURS
     Route: 041
  5. IRESSA [Suspect]
     Indication: LUNG NEOPLASM MALIGNANT
     Route: 048
     Dates: start: 20070601
  6. GEMZAR [Suspect]
     Dosage: 1500 MG ON DAY 8 FOR 30 MIN TO 1 HOUR
     Route: 041

REACTIONS (7)
  - ASPARTATE AMINOTRANSFERASE INCREASED [None]
  - BLOOD ALKALINE PHOSPHATASE INCREASED [None]
  - ALANINE AMINOTRANSFERASE INCREASED [None]
  - RASH [None]
  - GAMMA-GLUTAMYLTRANSFERASE INCREASED [None]
  - SKIN EXFOLIATION [None]
  - DIARRHOEA [None]
